FAERS Safety Report 9767309 (Version 7)
Quarter: 2014Q2

REPORT INFORMATION
  Report Type: Spontaneous
  Country: JP (occurrence: JP)
  Receive Date: 20131217
  Receipt Date: 20140613
  Transmission Date: 20141212
  Serious: Yes (Hospitalization, Other)
  Sender: FDA-Public Use
  Company Number: JP-ELI_LILLY_AND_COMPANY-JP201311002893

PATIENT
  Sex: Male

DRUGS (9)
  1. CYMBALTA [Suspect]
     Indication: POST HERPETIC NEURALGIA
     Dosage: 40 MG, QD
     Route: 048
     Dates: start: 20130802
  2. CYMBALTA [Suspect]
     Dosage: 60 MG, QD
     Route: 048
     Dates: end: 20130920
  3. LYRICA [Suspect]
     Indication: POST HERPETIC NEURALGIA
     Dosage: 1 DF, UNK
     Route: 048
     Dates: start: 20130802, end: 201308
  4. LYRICA [Suspect]
     Dosage: 2 DF, UNK
     Route: 048
     Dates: start: 201308, end: 20130920
  5. SILODOSIN [Suspect]
     Indication: PRODUCT USED FOR UNKNOWN INDICATION
     Route: 048
  6. CELLCEPT                           /01275102/ [Concomitant]
     Indication: IMMUNOSUPPRESSION
     Route: 048
  7. TACROLIMUS [Concomitant]
     Indication: IMMUNOSUPPRESSION
     Route: 048
  8. MEDROL [Concomitant]
     Indication: IMMUNOSUPPRESSION
     Route: 048
  9. EURODIN                            /00425901/ [Concomitant]
     Route: 048

REACTIONS (27)
  - Loss of consciousness [Not Recovered/Not Resolved]
  - Suicidal ideation [Not Recovered/Not Resolved]
  - Convulsion [Unknown]
  - Convulsion [Not Recovered/Not Resolved]
  - Hyposmia [Unknown]
  - Gynaecomastia [Unknown]
  - Off label use [Recovered/Resolved]
  - Depersonalisation [Not Recovered/Not Resolved]
  - Dystonia [Not Recovered/Not Resolved]
  - Oedema [Not Recovered/Not Resolved]
  - Pain [Unknown]
  - Hypokalaemia [Unknown]
  - Urinary incontinence [Not Recovered/Not Resolved]
  - Depressed mood [Unknown]
  - Psychological trauma [Not Recovered/Not Resolved]
  - Urinary retention [Unknown]
  - Hypoaesthesia [Unknown]
  - Drug withdrawal syndrome [Not Recovered/Not Resolved]
  - Hypoaesthesia [Not Recovered/Not Resolved]
  - Abdominal rigidity [Not Recovered/Not Resolved]
  - Cold sweat [Not Recovered/Not Resolved]
  - Irritability [Not Recovered/Not Resolved]
  - Anger [Unknown]
  - Hyperhidrosis [Not Recovered/Not Resolved]
  - Feeling hot [Unknown]
  - Headache [Not Recovered/Not Resolved]
  - Vomiting [Not Recovered/Not Resolved]
